FAERS Safety Report 25961713 (Version 1)
Quarter: 2025Q4

REPORT INFORMATION
  Report Type: Spontaneous
  Country: EU (occurrence: EU)
  Receive Date: 20251027
  Receipt Date: 20251027
  Transmission Date: 20260118
  Serious: Yes (Other)
  Sender: ASTELLAS
  Company Number: EU-ASTELLAS-2025-AER-058289

PATIENT
  Age: 61 Year
  Sex: Female

DRUGS (3)
  1. PADCEV [Suspect]
     Active Substance: ENFORTUMAB VEDOTIN-EJFV
     Indication: Transitional cell carcinoma
     Route: 042
     Dates: start: 20250211
  2. PEMBROLIZUMAB [Concomitant]
     Active Substance: PEMBROLIZUMAB
     Indication: Transitional cell carcinoma
     Route: 042
     Dates: start: 20250211
  3. DENOSUMAB [Concomitant]
     Active Substance: DENOSUMAB
     Indication: Transitional cell carcinoma
     Route: 065
     Dates: start: 20250211

REACTIONS (4)
  - Pelvic fracture [Unknown]
  - Pathological fracture [Unknown]
  - Aspartate aminotransferase increased [Unknown]
  - Alanine aminotransferase increased [Unknown]

NARRATIVE: CASE EVENT DATE: 20250430
